FAERS Safety Report 6224079-X (Version None)
Quarter: 2009Q2

REPORT INFORMATION
  Report Type: 
  Country: None (occurrence: None)
  Receive Date: 20090612
  Receipt Date: 20090309
  Transmission Date: 20091009
  Serious: No
  Sender: FDA-Public Use
  Company Number: US-ABBOTT-09P-163-0561525-00

PATIENT
  Sex: Female

DRUGS (3)
  1. HUMIRA [Suspect]
     Indication: COLITIS
     Route: 058
     Dates: start: 20080101
  2. FLONASE [Concomitant]
     Indication: ASTHMA
  3. LIALDA [Concomitant]
     Indication: COLITIS
     Dosage: 4 TABS DAILY

REACTIONS (4)
  - CHILLS [None]
  - HAEMOPTYSIS [None]
  - PYREXIA [None]
  - RESPIRATORY DISORDER [None]
